FAERS Safety Report 9199733 (Version 1)
Quarter: 2013Q1

REPORT INFORMATION
  Report Type: Spontaneous
  Country: US (occurrence: None)
  Receive Date: 20130328
  Receipt Date: 20130328
  Transmission Date: 20140127
  Serious: No
  Sender: FDA-Public Use
  Company Number: None

PATIENT
  Age: 18 Year
  Sex: Female
  Weight: 79.38 kg

DRUGS (1)
  1. GARDASIL [Suspect]
     Route: 030
     Dates: start: 20120514, end: 20120514

REACTIONS (1)
  - Incorrect dose administered [None]
